FAERS Safety Report 8304427-7 (Version None)
Quarter: 2012Q2

REPORT INFORMATION
  Report Type: 
  Country: None (occurrence: None)
  Receive Date: 20120423
  Receipt Date: 20110429
  Transmission Date: 20120825
  Serious: No
  Sender: FDA-Public Use
  Company Number: US-COVIDIEN/TYCO HEALTHCARE/MALLINCKRODT-T201100841

PATIENT
  Age: 55 Year
  Sex: Female
  Weight: 45.351 kg

DRUGS (4)
  1. METHYLIN [Suspect]
     Indication: DEPRESSION
     Dosage: 10 MG, 1 TAB Q 8:00 AM AND 2 TABS TID
     Route: 048
     Dates: start: 20110418
  2. LITHIUM CARBONATE [Concomitant]
     Indication: MAJOR DEPRESSION
     Dosage: 300 UNK, QD
     Route: 048
  3. PROZAC [Concomitant]
     Indication: MAJOR DEPRESSION
     Dosage: 20 MG, BID
     Route: 048
  4. WELLBUTRIN XL [Concomitant]
     Indication: MAJOR DEPRESSION
     Dosage: 300 MG, QD

REACTIONS (10)
  - STRESS [None]
  - DECREASED APPETITE [None]
  - PSYCHOMOTOR HYPERACTIVITY [None]
  - ASTHENIA [None]
  - MUSCULAR WEAKNESS [None]
  - NERVOUSNESS [None]
  - DRUG INEFFECTIVE [None]
  - HYPERSOMNIA [None]
  - MEMORY IMPAIRMENT [None]
  - PAIN [None]
